FAERS Safety Report 20870016 (Version 10)
Quarter: 2024Q3

REPORT INFORMATION
  Report Type: Report from Study
  Country: DE (occurrence: DE)
  Receive Date: 20220525
  Receipt Date: 20240926
  Transmission Date: 20241016
  Serious: No
  Sender: ROCHE
  Company Number: DE-ROCHE-2887751

PATIENT
  Age: 54 Year
  Sex: Female

DRUGS (13)
  1. OCREVUS [Suspect]
     Active Substance: OCRELIZUMAB
     Indication: Relapsing-remitting multiple sclerosis
     Route: 042
     Dates: start: 20210609
  2. OCREVUS [Suspect]
     Active Substance: OCRELIZUMAB
     Indication: Primary progressive multiple sclerosis
     Dosage: SUBSEQUENT DOSE 600 MG ONCE IN 180 DAYS, THEN ONCE IN 189 DAYS
     Route: 042
     Dates: start: 20210623
  3. OCREVUS [Suspect]
     Active Substance: OCRELIZUMAB
     Route: 042
     Dates: start: 20230213
  4. OCREVUS [Suspect]
     Active Substance: OCRELIZUMAB
     Route: 042
     Dates: start: 20231025
  5. EVUSHELD [Suspect]
     Active Substance: CILGAVIMAB\TIXAGEVIMAB
     Indication: Product used for unknown indication
     Route: 065
  6. CORTISONE [Concomitant]
     Active Substance: CORTISONE
     Route: 029
  7. DALFAMPRIDINE [Concomitant]
     Active Substance: DALFAMPRIDINE
  8. LEVOTHYROXINE [Concomitant]
     Active Substance: LEVOTHYROXINE\LEVOTHYROXINE SODIUM
  9. PANTOPRAZOLE [Concomitant]
     Active Substance: PANTOPRAZOLE
  10. NEBIVOLOL [Concomitant]
     Active Substance: NEBIVOLOL
  11. ATORVASTATIN [Concomitant]
     Active Substance: ATORVASTATIN
  12. ASPIRIN [Concomitant]
     Active Substance: ASPIRIN
  13. ASPIRIN [Concomitant]
     Active Substance: ASPIRIN
     Dosage: 100 UNIT NOT REPORTED

REACTIONS (13)
  - Lichen planus [Recovered/Resolved]
  - Respiratory tract infection [Recovered/Resolved]
  - Haematocrit increased [Recovered/Resolved]
  - COVID-19 [Recovered/Resolved]
  - SARS-CoV-2 antibody test negative [Not Recovered/Not Resolved]
  - Fall [Unknown]
  - Ligament rupture [Recovered/Resolved]
  - Lichen sclerosus [Recovered/Resolved]
  - B-lymphocyte count decreased [Recovered/Resolved]
  - Lymphocyte count decreased [Recovered/Resolved]
  - Fractured sacrum [Recovered/Resolved]
  - Haematoma [Recovered/Resolved]
  - Arthralgia [Not Recovered/Not Resolved]

NARRATIVE: CASE EVENT DATE: 20210623
